FAERS Safety Report 6322068-8 (Version None)
Quarter: 2009Q3

REPORT INFORMATION
  Report Type: 
  Country: None (occurrence: None)
  Receive Date: 20090821
  Receipt Date: 20090821
  Transmission Date: 20100115
  Serious: Yes (Other)
  Sender: FDA-Public Use
  Company Number: None

PATIENT
  Sex: Female
  Weight: 63.9572 kg

DRUGS (15)
  1. RECLAST [Suspect]
     Indication: OSTEOPOROSIS
     Dosage: 5 MG -100 ML- EVERY 12 MONTHS IV BOLUS ONE INFUSION
     Route: 040
     Dates: start: 20090612, end: 20090612
  2. PREDNISONE TAB [Concomitant]
  3. OMEPRAZOLE [Concomitant]
  4. ACTIVELLA [Concomitant]
  5. AMLODIPINE BESYLATE [Concomitant]
  6. BUPROPION HCL [Concomitant]
  7. CITALOPRAM [Concomitant]
  8. CALCIUM [Concomitant]
  9. VITAMIN D [Concomitant]
  10. ACYCLOVIR [Concomitant]
  11. MULTI-VITAMIN [Concomitant]
  12. IRON [Concomitant]
  13. GLUCOSAMINE.CHONDROITIN [Concomitant]
  14. TUMS/MYLANTA [Concomitant]
  15. IBUPROFEN [Concomitant]

REACTIONS (3)
  - DYSPNOEA [None]
  - POOR QUALITY SLEEP [None]
  - TEMPORAL ARTERITIS [None]
